FAERS Safety Report 24996319 (Version 8)
Quarter: 2025Q3

REPORT INFORMATION
  Report Type: Spontaneous
  Country: US (occurrence: US)
  Receive Date: 20250221
  Receipt Date: 20250806
  Transmission Date: 20251020
  Serious: Yes (Hospitalization, Other)
  Sender: PFIZER
  Company Number: US-PFIZER INC-202500029014

PATIENT
  Age: 74 Year
  Sex: Male
  Weight: 93.4 kg

DRUGS (4)
  1. MEKTOVI [Suspect]
     Active Substance: BINIMETINIB
     Indication: Metastatic malignant melanoma
     Dosage: 15 MG, 2X/DAY (TAKE 10-12 HRS APART)
     Route: 048
  2. MEKTOVI [Suspect]
     Active Substance: BINIMETINIB
     Indication: Metastases to lymph nodes
     Dosage: 45 MG (3 TABLETS OF 15 MG), 2X/DAY/TAKE 3 TABLETS 2 TIMES DAILY. TAKE DOSES ABOUT 10-12 HOURS APART
     Route: 048
  3. BRAFTOVI [Suspect]
     Active Substance: ENCORAFENIB
     Indication: Metastatic malignant melanoma
     Dosage: 450 MG (6 CAPSULES OF 75 MG), DAILY/TAKE 6 CAPSULES BY MOUTH DAILY
     Route: 048
  4. BRAFTOVI [Suspect]
     Active Substance: ENCORAFENIB
     Indication: Metastases to lymph nodes

REACTIONS (4)
  - Gallbladder disorder [Unknown]
  - Eczema [Unknown]
  - Weight increased [Unknown]
  - Off label use [Unknown]

NARRATIVE: CASE EVENT DATE: 20250618
